FAERS Safety Report 17327532 (Version 1)
Quarter: 2020Q1

REPORT INFORMATION
  Report Type: Report from Study
  Country: US (occurrence: US)
  Receive Date: 20200127
  Receipt Date: 20200127
  Transmission Date: 20200409
  Serious: Yes (Other)
  Sender: FDA-Public Use
  Company Number: US-SHIRE-US201940247

PATIENT
  Sex: Female

DRUGS (1)
  1. HUMAN NORMAL IMMUNOGLOBULIN; LIQUID 20 [Suspect]
     Active Substance: HUMAN IMMUNOGLOBULIN G
     Indication: IMMUNODEFICIENCY COMMON VARIABLE
     Route: 065

REACTIONS (10)
  - Hyperhidrosis [Unknown]
  - Fatigue [Unknown]
  - Clostridium difficile infection [Unknown]
  - Panic attack [Unknown]
  - Complication of device insertion [Unknown]
  - Needle issue [Unknown]
  - Nasal septum disorder [Unknown]
  - Nasal oedema [Unknown]
  - Infusion site pain [Unknown]
  - Vomiting [Unknown]
